FAERS Safety Report 7927660-2 (Version None)
Quarter: 2011Q4

REPORT INFORMATION
  Report Type: 
  Country: None (occurrence: None)
  Receive Date: 20111118
  Receipt Date: 20111107
  Transmission Date: 20120403
  Serious: Yes (Hospitalization)
  Sender: FDA-Public Use
  Company Number: US-ROCHE-389161

PATIENT
  Sex: Female
  Weight: 60.5 kg

DRUGS (4)
  1. PACLITAXEL [Suspect]
     Indication: BREAST CANCER
     Route: 042
     Dates: start: 20041008, end: 20041008
  2. DOXORUBICIN HCL [Suspect]
     Indication: BREAST CANCER
     Dosage: REPORTED AS 4 CYCLES COMPLETED
     Route: 065
     Dates: start: 20040716, end: 20040917
  3. HERCEPTIN [Suspect]
     Indication: BREAST CANCER
     Dosage: REPORTED AS 250 MG
     Route: 042
     Dates: start: 20041008, end: 20041008
  4. CYCLOPHOSPHAMIDE [Suspect]
     Indication: BREAST CANCER
     Dosage: REPORTED AS 4 CYCLES COMPLETED
     Route: 065
     Dates: start: 20040716, end: 20040917

REACTIONS (2)
  - FATIGUE [None]
  - DEHYDRATION [None]
